FAERS Safety Report 5815197-6 (Version None)
Quarter: 2008Q3

REPORT INFORMATION
  Report Type: 
  Country: None (occurrence: None)
  Receive Date: 20080718
  Receipt Date: 20080707
  Transmission Date: 20090109
  Serious: Yes (Hospitalization)
  Sender: FDA-Public Use
  Company Number: FR-ROCHE-574889

PATIENT
  Sex: Female

DRUGS (15)
  1. VALIUM [Suspect]
     Indication: DRUG USE FOR UNKNOWN INDICATION
     Dosage: TAKEN DAILY
     Route: 048
     Dates: end: 20080213
  2. COUMADIN [Suspect]
     Indication: DRUG USE FOR UNKNOWN INDICATION
     Dosage: TAKEN DAILY
     Route: 048
  3. COUMADIN [Suspect]
     Route: 048
  4. FUROSEMIDE [Suspect]
     Indication: DRUG USE FOR UNKNOWN INDICATION
     Dosage: TAKEN DAILY
     Route: 048
  5. RISPERDAL [Suspect]
     Indication: DRUG USE FOR UNKNOWN INDICATION
     Dosage: TAKEN DAILY
     Route: 048
  6. RISPERDAL [Suspect]
     Dosage: DOSE DECREASED.
     Route: 048
  7. RISPERDAL [Suspect]
     Dosage: DOSE INCREASED.
     Route: 048
  8. MEPRONIZINE [Suspect]
     Indication: DRUG USE FOR UNKNOWN INDICATION
     Dosage: TAKEN DAILY
     Route: 048
     Dates: end: 20080213
  9. IXPRIM [Suspect]
     Indication: DRUG USE FOR UNKNOWN INDICATION
     Dosage: TAKEN DAILY
     Route: 048
     Dates: end: 20080213
  10. DEPAKOTE [Concomitant]
  11. CYMBALTA [Concomitant]
  12. MORPHINE SULFATE [Concomitant]
  13. ARICEPT [Concomitant]
  14. LEVOTHYROX [Concomitant]
  15. TRANSIPEG [Concomitant]

REACTIONS (4)
  - CONFUSIONAL STATE [None]
  - FALL [None]
  - HAEMARTHROSIS [None]
  - OVERDOSE [None]
